FAERS Safety Report 4292452-5 (Version None)
Quarter: 2004Q1

REPORT INFORMATION
  Report Type: 
  Country: None (occurrence: None)
  Receive Date: 20040126
  Receipt Date: 20030827
  Transmission Date: 20041129
  Serious: No
  Sender: FDA-Public Use
  Company Number: USA030946219

PATIENT
  Age: 68 Year
  Sex: Female
  Weight: 63 kg

DRUGS (1)
  1. FORTEO [Suspect]
     Indication: OSTEOPOROSIS
     Dosage: 20 UG/DAY
     Dates: start: 20030101

REACTIONS (5)
  - CONSTIPATION [None]
  - DIFFICULTY IN WALKING [None]
  - INSOMNIA [None]
  - PAIN [None]
  - SLUGGISHNESS [None]
